FAERS Safety Report 7125863-0 (Version None)
Quarter: 2010Q4

REPORT INFORMATION
  Report Type: 
  Country: None (occurrence: None)
  Receive Date: 20101129
  Receipt Date: 20101116
  Transmission Date: 20110411
  Serious: Yes (Hospitalization, Other)
  Sender: FDA-Public Use
  Company Number: NL-ELI_LILLY_AND_COMPANY-NL201011004663

PATIENT
  Age: 25 Year
  Sex: Female

DRUGS (2)
  1. ZYPADHERA [Suspect]
     Indication: SCHIZOPHRENIA
     Dosage: 210 MG, 2/W
     Route: 030
  2. ZYPREXA [Suspect]
     Dosage: 30 MG, DAILY (1/D)

REACTIONS (6)
  - DRUG ABUSE [None]
  - DRUG ABUSER [None]
  - OVERDOSE [None]
  - PSYCHOTIC DISORDER [None]
  - SEDATION [None]
  - SOMNOLENCE [None]
